FAERS Safety Report 20701859 (Version 2)
Quarter: 2022Q2

REPORT INFORMATION
  Report Type: Spontaneous
  Country: GB (occurrence: GB)
  Receive Date: 20220412
  Receipt Date: 20220621
  Transmission Date: 20220721
  Serious: No
  Sender: FDA-Public Use
  Company Number: GB-LUPIN PHARMACEUTICALS INC.-2022-05405

PATIENT
  Sex: Male

DRUGS (6)
  1. GABAPENTIN [Suspect]
     Active Substance: GABAPENTIN
     Indication: Behaviour disorder
     Dosage: UNK
     Route: 048
  2. GABAPENTIN [Suspect]
     Active Substance: GABAPENTIN
     Indication: Deafness neurosensory
  3. CLONIDINE [Suspect]
     Active Substance: CLONIDINE
     Indication: Deafness neurosensory
     Dosage: UNK
     Route: 048
  4. CLONIDINE [Suspect]
     Active Substance: CLONIDINE
     Indication: Behaviour disorder
  5. LEVODOPA [Suspect]
     Active Substance: LEVODOPA
     Indication: Deafness neurosensory
     Dosage: UNK
     Route: 048
  6. LEVODOPA [Suspect]
     Active Substance: LEVODOPA
     Indication: Behaviour disorder

REACTIONS (2)
  - Off label use [Unknown]
  - Drug ineffective for unapproved indication [Unknown]
